FAERS Safety Report 9866929 (Version 2)
Quarter: 2014Q1

REPORT INFORMATION
  Report Type: Spontaneous
  Country: US (occurrence: US)
  Receive Date: 20140204
  Receipt Date: 20140220
  Transmission Date: 20141002
  Serious: Yes (Hospitalization)
  Sender: FDA-Public Use
  Company Number: US-PFIZER INC-2014029913

PATIENT
  Age: 51 Year
  Sex: Male
  Weight: 72.56 kg

DRUGS (3)
  1. GABAPENTIN [Suspect]
     Indication: POST HERPETIC NEURALGIA
     Dosage: 600 MG, 3X/DAY
     Route: 048
  2. OPANA [Concomitant]
     Indication: PAIN
     Dosage: UNK
  3. METFORMIN [Concomitant]
     Dosage: UNK

REACTIONS (2)
  - Cholelithiasis [Unknown]
  - Drug ineffective [Unknown]
